FAERS Safety Report 4932243-2 (Version None)
Quarter: 2006Q1

REPORT INFORMATION
  Report Type: 
  Country: None (occurrence: None)
  Receive Date: 20060303
  Receipt Date: 20051205
  Transmission Date: 20060701
  Serious: Yes (Death, Hospitalization, Other)
  Sender: FDA-Public Use
  Company Number: US-ABBOTT-05P-163-0318683-00

PATIENT
  Sex: Female
  Weight: 88.53 kg

DRUGS (42)
  1. HUMIRA [Suspect]
     Indication: RHEUMATOID ARTHRITIS
     Route: 058
     Dates: start: 20040304, end: 20050805
  2. FENTANYL CITRATE [Concomitant]
     Indication: DRUG USE FOR UNKNOWN INDICATION
     Route: 061
     Dates: start: 20050830
  3. ZOLPIDEM TARTRATE [Concomitant]
     Indication: INSOMNIA
     Route: 048
  4. FUROSEMIDE [Concomitant]
     Indication: DIURETIC THERAPY
     Route: 048
  5. FUROSEMIDE [Concomitant]
     Dates: start: 20040624
  6. LORAZEPAM [Concomitant]
     Indication: ANXIETY
     Route: 048
  7. PROPACET 100 [Concomitant]
     Indication: DRUG USE FOR UNKNOWN INDICATION
  8. PROPACET 100 [Concomitant]
  9. ACETYLSALICYLIC ACID SRT [Concomitant]
     Indication: ANTICOAGULANT THERAPY
     Route: 048
  10. RISEDRONATE SODIUM [Concomitant]
     Indication: DRUG USE FOR UNKNOWN INDICATION
  11. PANTOPRAZOLE [Concomitant]
     Indication: GASTROOESOPHAGEAL REFLUX DISEASE
     Route: 048
  12. PANTOPRAZOLE [Concomitant]
     Dates: start: 20040624
  13. PANTOPRAZOLE [Concomitant]
     Dates: start: 20041025, end: 20050523
  14. ZIPRASIDONE HYDROCHLORIDE [Concomitant]
     Indication: ANXIETY
     Route: 048
  15. ALLOPURINOL [Concomitant]
     Indication: DRUG USE FOR UNKNOWN INDICATION
     Route: 048
  16. ALLOPURINOL [Concomitant]
     Dates: start: 20040304
  17. LEVOTHYROXINE SODIUM [Concomitant]
     Indication: THYROID DISORDER
     Route: 048
  18. HEPARIN [Concomitant]
     Indication: ANTICOAGULANT THERAPY
     Route: 058
  19. MAGNESIUM HYDROXIDE TAB [Concomitant]
     Indication: LAXATIVE SUPPORTIVE CARE
     Route: 048
  20. FLEETS [Concomitant]
     Indication: LAXATIVE SUPPORTIVE CARE
     Dosage: ROUTE: PR
  21. BISACODYL [Concomitant]
     Indication: LAXATIVE SUPPORTIVE CARE
     Dosage: ROUTE: PR
  22. ACETAMINOPHEN [Concomitant]
     Route: 048
  23. ALENDRONATE SODIUM [Concomitant]
     Indication: DRUG USE FOR UNKNOWN INDICATION
  24. FLUOXETINE HCL [Concomitant]
     Indication: DRUG USE FOR UNKNOWN INDICATION
  25. CALICUM [Concomitant]
     Indication: DRUG USE FOR UNKNOWN INDICATION
     Dates: end: 20050523
  26. MULTIVITAMIN [Concomitant]
     Indication: DRUG USE FOR UNKNOWN INDICATION
  27. TRAMADOL HCL [Concomitant]
     Indication: DRUG USE FOR UNKNOWN INDICATION
     Dates: end: 20050523
  28. DIGOXIN [Concomitant]
     Indication: DRUG USE FOR UNKNOWN INDICATION
  29. DIGOXIN [Concomitant]
     Dates: start: 20041025, end: 20050523
  30. DIGOXIN [Concomitant]
     Dates: start: 20050523
  31. ALLOPURINOL [Concomitant]
  32. MECLIZINE [Concomitant]
     Indication: DRUG USE FOR UNKNOWN INDICATION
  33. POTASSIUM [Concomitant]
     Indication: DRUG USE FOR UNKNOWN INDICATION
  34. VERAPAMIL [Concomitant]
     Indication: DRUG USE FOR UNKNOWN INDICATION
  35. TRAZODONE [Concomitant]
     Indication: DRUG USE FOR UNKNOWN INDICATION
  36. LAMOTRIGINE [Concomitant]
     Indication: DRUG USE FOR UNKNOWN INDICATION
     Dosage: II BID
     Dates: end: 20040624
  37. HYDROXYCHLOROQUINE PHOSPHATE [Concomitant]
     Indication: DRUG USE FOR UNKNOWN INDICATION
     Dates: start: 20040624, end: 20050523
  38. PREDNISONE [Concomitant]
     Indication: DRUG USE FOR UNKNOWN INDICATION
     Dates: end: 20041024
  39. PREDNISONE [Concomitant]
     Dates: start: 20041025
  40. FOLTREN [Concomitant]
     Indication: DRUG USE FOR UNKNOWN INDICATION
     Dates: start: 20041025, end: 20050523
  41. GABAPENTIN [Concomitant]
     Indication: DRUG USE FOR UNKNOWN INDICATION
     Dates: start: 20041025
  42. FAMOTIDINE [Concomitant]
     Indication: DRUG USE FOR UNKNOWN INDICATION

REACTIONS (15)
  - ATRIAL FIBRILLATION [None]
  - CELLULITIS [None]
  - DILATATION ATRIAL [None]
  - FALL [None]
  - LYMPHADENOPATHY [None]
  - OPEN FRACTURE [None]
  - PAIN [None]
  - PERIPHERAL ARTERIAL OCCLUSIVE DISEASE [None]
  - PERIPHERAL VASCULAR DISORDER [None]
  - PULMONARY HYPERTENSION [None]
  - SKIN ULCER [None]
  - SPINAL FRACTURE [None]
  - STAPHYLOCOCCAL INFECTION [None]
  - VENTRICULAR EXTRASYSTOLES [None]
  - VENTRICULAR HYPERTROPHY [None]
